FAERS Safety Report 11776669 (Version 1)
Quarter: 2015Q4

REPORT INFORMATION
  Report Type: Spontaneous
  Country: US (occurrence: None)
  Receive Date: 20151123
  Receipt Date: 20151123
  Transmission Date: 20160304
  Serious: Yes (Other)
  Sender: FDA-Public Use
  Company Number: None

PATIENT
  Age: 14 Year
  Sex: Female
  Weight: 71.67 kg

DRUGS (1)
  1. MONTELUKAST SODIUM. [Suspect]
     Active Substance: MONTELUKAST SODIUM
     Indication: RHINITIS ALLERGIC
     Dosage: 1 PILL
     Route: 048
     Dates: start: 20141218, end: 20151021

REACTIONS (2)
  - Dissociative fugue [None]
  - Hallucination, auditory [None]

NARRATIVE: CASE EVENT DATE: 20151022
